FAERS Safety Report 20933033 (Version 1)
Quarter: 2022Q2

REPORT INFORMATION
  Report Type: Spontaneous
  Country: US (occurrence: US)
  Receive Date: 20220608
  Receipt Date: 20220608
  Transmission Date: 20220721
  Serious: No
  Sender: FDA-Public Use
  Company Number: US-ORGANON-O2206USA000488

PATIENT
  Sex: Female
  Weight: 66.304 kg

DRUGS (1)
  1. NEXPLANON [Suspect]
     Active Substance: ETONOGESTREL
     Indication: Contraception
     Dosage: 1 IMPLANT IN ARM (DOSE/FREQUENCY REPORTED AS 68 MG)
     Route: 059
     Dates: start: 20190815

REACTIONS (2)
  - Menstruation irregular [Not Recovered/Not Resolved]
  - Device issue [Not Recovered/Not Resolved]
